FAERS Safety Report 7906403-2 (Version None)
Quarter: 2011Q4

REPORT INFORMATION
  Report Type: 
  Country: None (occurrence: None)
  Receive Date: 20111110
  Receipt Date: 20111107
  Transmission Date: 20120403
  Serious: Yes (Hospitalization, Other)
  Sender: FDA-Public Use
  Company Number: GB-PFIZER INC-2011272605

PATIENT
  Age: 33 Year
  Sex: Male
  Weight: 89.5 kg

DRUGS (1)
  1. SULFASALAZINE [Suspect]
     Indication: PSORIATIC ARTHROPATHY
     Dosage: 500 MG, 4X/DAY
     Route: 048
     Dates: start: 20110829, end: 20111021

REACTIONS (2)
  - SEPSIS [None]
  - NEUTROPENIA [None]
